FAERS Safety Report 14757860 (Version 2)
Quarter: 2018Q2

REPORT INFORMATION
  Report Type: Spontaneous
  Country: US (occurrence: US)
  Receive Date: 20180413
  Receipt Date: 20180418
  Transmission Date: 20180711
  Serious: No
  Sender: FDA-Public Use
  Company Number: US-SHIRE-US201813427

PATIENT
  Sex: Female

DRUGS (1)
  1. XIIDRA [Suspect]
     Active Substance: LIFITEGRAST
     Indication: DRY EYE
     Route: 047

REACTIONS (6)
  - Visual impairment [Unknown]
  - Instillation site warmth [Unknown]
  - Inappropriate schedule of drug administration [Unknown]
  - Instillation site pain [Unknown]
  - Vision blurred [Unknown]
  - Instillation site erythema [Unknown]
